FAERS Safety Report 18839262 (Version 1)
Quarter: 2021Q1

REPORT INFORMATION
  Report Type: Spontaneous
  Country: PK (occurrence: PK)
  Receive Date: 20210203
  Receipt Date: 20210203
  Transmission Date: 20210419
  Serious: Yes (Other)
  Sender: FDA-Public Use
  Company Number: NVSC2021PK012614

PATIENT
  Age: 26 Year
  Sex: Male
  Weight: 70 kg

DRUGS (3)
  1. RITALIN [Suspect]
     Active Substance: METHYLPHENIDATE HYDROCHLORIDE
     Indication: ASTHENIA
     Dosage: 60 MG, QD
     Route: 048
     Dates: start: 2015, end: 2015
  2. RITALIN [Suspect]
     Active Substance: METHYLPHENIDATE HYDROCHLORIDE
     Indication: POST PROCEDURAL HAEMATOMA
     Dosage: 20 MG, QD
     Route: 065
     Dates: start: 2013, end: 2013
  3. FLUOXETINE [Concomitant]
     Active Substance: FLUOXETINE HYDROCHLORIDE
     Indication: MAJOR DEPRESSION
     Dosage: 20 MG, QD
     Route: 065

REACTIONS (10)
  - Schizophrenia [Unknown]
  - Neuropathy peripheral [Unknown]
  - Mood altered [Unknown]
  - Substance-induced psychotic disorder [Not Recovered/Not Resolved]
  - Psychotic disorder [Unknown]
  - Prescription drug used without a prescription [Unknown]
  - Product use in unapproved indication [Unknown]
  - Impatience [Not Recovered/Not Resolved]
  - Euphoric mood [Unknown]
  - Behaviour disorder [Unknown]

NARRATIVE: CASE EVENT DATE: 2015
